FAERS Safety Report 4270100-8 (Version None)
Quarter: 2004Q1

REPORT INFORMATION
  Report Type: 
  Country: None (occurrence: None)
  Receive Date: 20040114
  Receipt Date: 20030305
  Transmission Date: 20041129
  Serious: No
  Sender: FDA-Public Use
  Company Number: US-GLAXOSMITHKLINE-A0399225A

PATIENT
  Age: 35 Year
  Sex: Female

DRUGS (3)
  1. WELLBUTRIN [Suspect]
     Indication: DEPRESSION
     Dosage: 150MG TWICE PER DAY
     Route: 048
     Dates: start: 20030201, end: 20030301
  2. SYNTHROID [Concomitant]
  3. EFFEXOR [Concomitant]

REACTIONS (2)
  - BILIRUBIN URINE [None]
  - PROTEIN URINE PRESENT [None]
